FAERS Safety Report 5608759-2 (Version None)
Quarter: 2008Q1

REPORT INFORMATION
  Report Type: 
  Country: None (occurrence: None)
  Receive Date: 20080131
  Receipt Date: 20080122
  Transmission Date: 20080703
  Serious: Yes (Hospitalization)
  Sender: FDA-Public Use
  Company Number: US-JNJFOC-20080106109

PATIENT
  Sex: Male
  Weight: 92.22 kg

DRUGS (13)
  1. DURAGESIC-100 [Suspect]
     Indication: PAIN
     Dosage: 3X 100 UG/HR PATCHES
     Route: 062
  2. ASPIRIN [Concomitant]
     Indication: CARDIAC DISORDER
     Route: 048
  3. PREVACID [Concomitant]
     Indication: GASTRIC DISORDER
     Route: 048
  4. ZOMETA [Concomitant]
     Indication: DRUG USE FOR UNKNOWN INDICATION
     Route: 065
  5. LEVOXYL [Concomitant]
     Indication: THYROID DISORDER
     Route: 048
  6. ZOCOR [Concomitant]
     Indication: BLOOD CHOLESTEROL
     Route: 048
  7. CLARINEX [Concomitant]
     Indication: MULTIPLE ALLERGIES
     Route: 048
  8. COLACE [Concomitant]
     Route: 048
  9. FLEXERIL [Concomitant]
     Route: 048
  10. FOLIC ACID [Concomitant]
     Indication: DRUG USE FOR UNKNOWN INDICATION
     Route: 048
  11. MSIR [Concomitant]
     Indication: PAIN
     Route: 048
  12. CYMBALTA [Concomitant]
     Route: 048
  13. LASIX [Concomitant]
     Indication: OEDEMA
     Route: 048

REACTIONS (1)
  - CARDIAC DISORDER [None]
